FAERS Safety Report 19855302 (Version 1)
Quarter: 2021Q3

REPORT INFORMATION
  Report Type: Spontaneous
  Country: US (occurrence: US)
  Receive Date: 20210919
  Receipt Date: 20210919
  Transmission Date: 20211014
  Serious: Yes (Disabling)
  Sender: FDA-Public Use
  Company Number: None

PATIENT
  Age: 36 Year
  Sex: Female
  Weight: 65.25 kg

DRUGS (8)
  1. JUNEL BIRTH CONTROL [Concomitant]
  2. MERCAPTOPURINE. [Concomitant]
     Active Substance: MERCAPTOPURINE
  3. MESALAMINE ORAL [Concomitant]
  4. CANADA [Concomitant]
  5. PROBIOTIC [Concomitant]
     Active Substance: PROBIOTICS NOS
  6. ENTYVIO [Suspect]
     Active Substance: VEDOLIZUMAB
     Indication: COLITIS ULCERATIVE
     Dates: start: 20201202, end: 20210505
  7. PREBIOTIC [Concomitant]
  8. WOMEN^S DAILY [Concomitant]

REACTIONS (2)
  - Therapy non-responder [None]
  - Cough [None]

NARRATIVE: CASE EVENT DATE: 20210104
